FAERS Safety Report 9669654 (Version 2)
Quarter: 2013Q4

REPORT INFORMATION
  Report Type: Report from Study
  Country: US (occurrence: US)
  Receive Date: 20131105
  Receipt Date: 20131105
  Transmission Date: 20140711
  Serious: Yes (Other)
  Sender: FDA-Public Use
  Company Number: US-ABBVIE-13P-163-1143079-00

PATIENT
  Age: 49 Year
  Sex: Female
  Weight: 130.75 kg

DRUGS (3)
  1. LUPRON DEPOT [Suspect]
     Indication: UTERINE LEIOMYOMA
     Dates: start: 201209, end: 201301
  2. LUPRON DEPOT [Suspect]
     Indication: ENDOMETRIOSIS
  3. IRON [Concomitant]
     Indication: ANAEMIA
     Route: 048
     Dates: start: 20120912, end: 20130130

REACTIONS (1)
  - Menorrhagia [Recovered/Resolved]
